FAERS Safety Report 4446901-X (Version None)
Quarter: 2004Q3

REPORT INFORMATION
  Report Type: 
  Country: None (occurrence: None)
  Receive Date: 20040908
  Receipt Date: 20040824
  Transmission Date: 20050211
  Serious: Yes (Hospitalization)
  Sender: FDA-Public Use
  Company Number: 2004-DE-04493GD

PATIENT
  Age: 28 Month
  Sex: Female

DRUGS (3)
  1. IPRATROPIUM-BROMIDE (IPRATROPIUM BROMIDE) (NR) [Suspect]
     Indication: RESPIRATORY DISTRESS
     Route: 055
  2. ALBUTEROL [Suspect]
     Indication: RESPIRATORY DISTRESS
     Route: 055
  3. EPINEPHRINE [Suspect]
     Indication: RESPIRATORY DISTRESS
     Route: 055

REACTIONS (5)
  - DRUG INEFFECTIVE [None]
  - FIBRINOUS BRONCHITIS [None]
  - INFLAMMATION [None]
  - MUCOSAL ULCERATION [None]
  - PROTEIN-LOSING GASTROENTEROPATHY [None]
